FAERS Safety Report 8733476 (Version 2)
Quarter: 2012Q4

REPORT INFORMATION
  Report Type: 
  Country: US (occurrence: US)
  Receive Date: 20120821
  Receipt Date: 20121213
  Transmission Date: 20130627
  Serious: Yes (Other)
  Sender: FDA-Public Use
  Company Number: US-BAYER-2012-082423

PATIENT
  Age: 45 Year
  Sex: Female

DRUGS (9)
  1. YAZ [Suspect]
  2. YASMIN [Suspect]
  3. OCELLA [Suspect]
  4. FLUCONAZOLE [Concomitant]
     Dosage: 150 mg, UNK
  5. FEXOFENADINE HYDROCHLORIDE [Concomitant]
     Dosage: 180 mg, UNK
     Dates: start: 20100617, end: 20101026
  6. AZITHROMYCIN [Concomitant]
     Dosage: 250 mg, UNK
     Dates: start: 20100617
  7. METHYLPREDNISOLONE [Concomitant]
     Dosage: 4 mg, UNK
     Dates: start: 20100617
  8. VASOTEC [Concomitant]
     Indication: HYPERTENSION
     Dosage: UNK
     Dates: start: 20100624
  9. CIPRO [Concomitant]
     Indication: UTI

REACTIONS (1)
  - Retinal vein occlusion [None]
